FAERS Safety Report 15713491 (Version 4)
Quarter: 2019Q1

REPORT INFORMATION
  Report Type: Spontaneous
  Country: JP (occurrence: JP)
  Receive Date: 20181212
  Receipt Date: 20190321
  Transmission Date: 20190417
  Serious: Yes (Hospitalization)
  Sender: FDA-Public Use
  Company Number: JP-EISAI MEDICAL RESEARCH-EC-2018-048941

PATIENT
  Age: 74 Year
  Sex: Female

DRUGS (2)
  1. LENVATINIB [Suspect]
     Active Substance: LENVATINIB
     Indication: PAPILLARY THYROID CANCER
     Route: 048
     Dates: start: 20161122, end: 2017
  2. LENVATINIB [Suspect]
     Active Substance: LENVATINIB
     Route: 048
     Dates: start: 2017, end: 2017

REACTIONS (3)
  - Wound infection [Recovered/Resolved]
  - Oesophageal fistula [Recovered/Resolved]
  - Impaired healing [Recovered/Resolved]

NARRATIVE: CASE EVENT DATE: 20170120
